FAERS Safety Report 4382893-X (Version None)
Quarter: 2004Q2

REPORT INFORMATION
  Report Type: 
  Country: None (occurrence: None)
  Receive Date: 20040617
  Receipt Date: 20040610
  Transmission Date: 20050107
  Serious: Yes (Other)
  Sender: FDA-Public Use
  Company Number: 2004-04-0239

PATIENT
  Age: 80 Year
  Sex: Female
  Weight: 77.1115 kg

DRUGS (1)
  1. CLARINEX [Suspect]
     Indication: MULTIPLE ALLERGIES
     Dosage: 5 MG QD ORAL
     Route: 048
     Dates: start: 20040303, end: 20040305

REACTIONS (2)
  - HALLUCINATION [None]
  - VISION BLURRED [None]
